FAERS Safety Report 9197701 (Version 2)
Quarter: 2013Q1

REPORT INFORMATION
  Report Type: Spontaneous
  Country: US (occurrence: US)
  Receive Date: 20130328
  Receipt Date: 20130329
  Transmission Date: 20140127
  Serious: Yes (Other)
  Sender: FDA-Public Use
  Company Number: US-ABBOTT-13P-163-1066315-00

PATIENT
  Sex: Male
  Weight: 90.8 kg

DRUGS (8)
  1. ANDROGEL [Suspect]
     Indication: BLOOD TESTOSTERONE DECREASED
     Dosage: PACKET
     Route: 061
     Dates: start: 2011, end: 201211
  2. ASPIRIN [Suspect]
     Indication: PRODUCT USED FOR UNKNOWN INDICATION
  3. LOSARTAN [Concomitant]
     Indication: HYPERTENSION
  4. SIMVASTATIN [Concomitant]
     Indication: BLOOD CHOLESTEROL INCREASED
  5. MULTIVITAMIN [Concomitant]
     Indication: PRODUCT USED FOR UNKNOWN INDICATION
  6. VITAMIN E [Concomitant]
     Indication: VITAMIN SUPPLEMENTATION
  7. FLAX SEED OIL [Concomitant]
     Indication: SUPPLEMENTATION THERAPY
  8. CO Q10 [Concomitant]
     Indication: SUPPLEMENTATION THERAPY

REACTIONS (2)
  - Prostate cancer [Recovered/Resolved]
  - Prostatic specific antigen increased [Recovered/Resolved]
